FAERS Safety Report 4674776-2 (Version None)
Quarter: 2005Q2

REPORT INFORMATION
  Report Type: 
  Country: None (occurrence: None)
  Receive Date: 20050526
  Receipt Date: 20050315
  Transmission Date: 20051028
  Serious: Yes (Hospitalization)
  Sender: FDA-Public Use
  Company Number: 2005AP01773

PATIENT
  Age: 20044 Day
  Sex: Male
  Weight: 88.6 kg

DRUGS (14)
  1. DIPRIVAN [Suspect]
     Indication: SEDATION
     Route: 041
     Dates: start: 20050214, end: 20050218
  2. DIPRIVAN [Suspect]
     Route: 041
     Dates: start: 20050221, end: 20050223
  3. WARFARIN [Concomitant]
     Route: 048
     Dates: start: 20050127, end: 20050130
  4. WARFARIN [Concomitant]
     Route: 048
     Dates: start: 20050131
  5. ARTIST [Concomitant]
     Route: 048
     Dates: start: 20050131
  6. ACECOL [Concomitant]
     Route: 048
  7. AMLODIN [Concomitant]
     Route: 048
  8. OPALMON [Concomitant]
     Route: 048
  9. GLUCOBAY [Concomitant]
     Indication: DIABETES MELLITUS
     Route: 048
  10. LENDORM [Concomitant]
     Route: 048
  11. NITRODERM [Concomitant]
  12. HUMACART N [Concomitant]
     Indication: DIABETES MELLITUS
     Route: 058
  13. HUMACART R [Concomitant]
     Indication: DIABETES MELLITUS
     Route: 058
  14. BUFFERIN [Concomitant]
     Route: 048

REACTIONS (3)
  - CARDIAC FAILURE [None]
  - HYPERTHERMIA MALIGNANT [None]
  - ISCHAEMIA [None]
